FAERS Safety Report 8584599-X (Version None)
Quarter: 2012Q3

REPORT INFORMATION
  Report Type: 
  Country: None (occurrence: None)
  Receive Date: 20120730
  Receipt Date: 20120717
  Transmission Date: 20120928
  Serious: Yes (Other)
  Sender: FDA-Public Use
  Company Number: 2012PL000130

PATIENT
  Age: 29 Year
  Sex: Female
  Weight: 52.6173 kg

DRUGS (3)
  1. LOTRONEX [Suspect]
     Indication: DIARRHOEA INFECTIOUS
     Dosage: 0.5 MG;QD;PO
     Route: 048
     Dates: start: 20120628, end: 20120714
  2. MIRENA [Concomitant]
  3. AMBIEN [Concomitant]

REACTIONS (6)
  - CONSTIPATION [None]
  - ABDOMINAL PAIN [None]
  - COLITIS ISCHAEMIC [None]
  - DIARRHOEA [None]
  - MUCOUS STOOLS [None]
  - HAEMATOCHEZIA [None]
